FAERS Safety Report 6034690-7 (Version None)
Quarter: 2009Q1

REPORT INFORMATION
  Report Type: 
  Country: None (occurrence: None)
  Receive Date: 20090109
  Receipt Date: 20090109
  Transmission Date: 20090719
  Serious: Yes (Other)
  Sender: FDA-Public Use
  Company Number: None

PATIENT
  Age: 32 Year
  Sex: Female
  Weight: 90.7194 kg

DRUGS (13)
  1. PROAIR HFA [Suspect]
     Indication: ASTHMA
     Dosage: 90 MCG/PUFF 4X DAILY INHAL
     Route: 055
  2. ADVAIR DISKUS 100/50 [Concomitant]
  3. ALBUTEROL [Concomitant]
  4. PREVENTIL [Concomitant]
  5. PRILOSEC [Concomitant]
  6. ZANTAC [Concomitant]
  7. BIRTH  CONTROL PILLS [Concomitant]
  8. MACROBID [Concomitant]
  9. VERAMYST [Concomitant]
  10. AMBIEN [Concomitant]
  11. BUSPAR [Concomitant]
  12. LAMICTAL [Concomitant]
  13. LEVACET [Concomitant]

REACTIONS (6)
  - CHEST PAIN [None]
  - DEVICE MALFUNCTION [None]
  - DRUG EFFECT DECREASED [None]
  - DYSPNOEA [None]
  - FEELING ABNORMAL [None]
  - PRODUCT QUALITY ISSUE [None]
